FAERS Safety Report 8763744 (Version 1)
Quarter: 2012Q4

REPORT INFORMATION
  Report Type: Spontaneous
  Country: US (occurrence: None)
  Receive Date: 20120831
  Receipt Date: 20120831
  Transmission Date: 20130627
  Serious: Yes (Other)
  Sender: FDA-Public Use
  Company Number: None

PATIENT
  Age: 39 Year
  Sex: Female
  Weight: 99.79 kg

DRUGS (1)
  1. BOTOX [Suspect]
     Indication: MUSCLE DISORDER

REACTIONS (2)
  - Headache [None]
  - Systemic lupus erythematosus [None]
